FAERS Safety Report 7986680-2 (Version None)
Quarter: 2011Q4

REPORT INFORMATION
  Report Type: 
  Country: None (occurrence: None)
  Receive Date: 20111216
  Receipt Date: 20110919
  Transmission Date: 20120403
  Serious: Yes (Other)
  Sender: FDA-Public Use
  Company Number: US-BRISTOL-MYERS SQUIBB COMPANY-15956717

PATIENT
  Age: 51 Year
  Sex: Female

DRUGS (2)
  1. PROLIXIN [Suspect]
  2. ABILIFY [Suspect]
     Indication: BIPOLAR DISORDER

REACTIONS (1)
  - CONVULSION [None]
